FAERS Safety Report 9907304 (Version 1)
Quarter: 2014Q1

REPORT INFORMATION
  Report Type: Report from Study
  Country: US (occurrence: US)
  Receive Date: 20140218
  Receipt Date: 20140218
  Transmission Date: 20141002
  Serious: Yes (Other)
  Sender: FDA-Public Use
  Company Number: US-ABBVIE-14P-163-1200375-00

PATIENT
  Sex: Male
  Weight: 104.42 kg

DRUGS (5)
  1. HUMIRA [Suspect]
     Indication: CROHN^S DISEASE
     Route: 058
     Dates: start: 2010, end: 2010
  2. HUMIRA [Suspect]
     Route: 058
     Dates: start: 2010, end: 2011
  3. HUMIRA [Suspect]
     Route: 058
     Dates: start: 2010, end: 2011
  4. HUMIRA [Suspect]
     Dates: start: 201402
  5. STELARA [Suspect]
     Indication: CROHN^S DISEASE
     Dates: start: 2012, end: 201306

REACTIONS (4)
  - Haematochezia [Not Recovered/Not Resolved]
  - Impaired healing [Not Recovered/Not Resolved]
  - Drug ineffective [Not Recovered/Not Resolved]
  - False positive tuberculosis test [Recovered/Resolved]
